FAERS Safety Report 6957360-7 (Version None)
Quarter: 2010Q3

REPORT INFORMATION
  Report Type: 
  Country: None (occurrence: None)
  Receive Date: 20100817
  Receipt Date: 20090728
  Transmission Date: 20110219
  Serious: Yes (Hospitalization)
  Sender: FDA-Public Use
  Company Number: 20097065

PATIENT
  Sex: Female

DRUGS (1)
  1. LIORESAL [Suspect]
     Dosage: 684.4 MCG, DAILY, INTRATHECAL
     Route: 037

REACTIONS (3)
  - HALLUCINATION [None]
  - HYPERTONIA [None]
  - PRURITUS [None]
